FAERS Safety Report 16590250 (Version 1)
Quarter: 2019Q3

REPORT INFORMATION
  Report Type: Spontaneous
  Country: US (occurrence: US)
  Receive Date: 20190718
  Receipt Date: 20190718
  Transmission Date: 20191004
  Serious: Yes (Other)
  Sender: FDA-Public Use
  Company Number: US-BAYER-2019-131648

PATIENT
  Sex: Female

DRUGS (1)
  1. COPPERTONE TANNING SUNSCREEN SPF 15 [Suspect]
     Active Substance: AVOBENZONE\HOMOSALATE\OCTISALATE\OCTOCRYLENE
     Dosage: UNK
     Dates: start: 2019

REACTIONS (6)
  - Application site vesicles [None]
  - Pain in extremity [None]
  - Depressed mood [None]
  - Skin injury [None]
  - Application site exfoliation [None]
  - Sunburn [None]

NARRATIVE: CASE EVENT DATE: 20190709
